FAERS Safety Report 5631465-5 (Version None)
Quarter: 2008Q1

REPORT INFORMATION
  Report Type: 
  Country: None (occurrence: None)
  Receive Date: 20080215
  Receipt Date: 20080201
  Transmission Date: 20080703
  Serious: Yes (Hospitalization)
  Sender: FDA-Public Use
  Company Number: SPV1-2008-00223

PATIENT
  Sex: Male

DRUGS (1)
  1. ELAPRASE(IDURSULAFASE) CONCENTRATE FOR SOLUTION FOR INFUSION [Suspect]
     Indication: MUCOPOLYSACCHARIDOSIS II
     Dosage: 0.5MG/KG, 1X/WEEK, IV DRIP
     Route: 041
     Dates: start: 20071017

REACTIONS (2)
  - ASTHMA [None]
  - CONDITION AGGRAVATED [None]
